FAERS Safety Report 25929679 (Version 1)
Quarter: 2025Q4

REPORT INFORMATION
  Report Type: Spontaneous
  Country: US (occurrence: US)
  Receive Date: 20251016
  Receipt Date: 20251016
  Transmission Date: 20260118
  Serious: Yes (Life-Threatening, Hospitalization, Other)
  Sender: SANDOZ
  Company Number: US-002147023-NVSC2019US071098

PATIENT
  Age: 21 Year
  Sex: Male

DRUGS (8)
  1. MYCOPHENOLATE MOFETIL [Suspect]
     Active Substance: MYCOPHENOLATE MOFETIL
     Indication: Immunosuppressant drug therapy
     Dosage: INDUCTION IMMUNESUPPRESSION
     Route: 065
  2. MYCOPHENOLATE MOFETIL [Suspect]
     Active Substance: MYCOPHENOLATE MOFETIL
     Dosage: INDUCTION IMMUNESUPPRESSION
     Route: 065
  3. PREDNISONE [Suspect]
     Active Substance: PREDNISONE
     Indication: Liver transplant
     Dosage: MAINTENANCE IMMUNESUPPRESSION
     Route: 065
  4. PREDNISONE [Suspect]
     Active Substance: PREDNISONE
     Indication: Immunosuppressant drug therapy
  5. TACROLIMUS [Suspect]
     Active Substance: TACROLIMUS
     Indication: Immunosuppressant drug therapy
     Dosage: INDUCTION IMMUNESUPPRESSION
     Route: 065
  6. TACROLIMUS [Suspect]
     Active Substance: TACROLIMUS
     Dosage: MAINTENANCE IMMUNESUPPRESSION
     Route: 065
  7. PENTAMIDINE [Concomitant]
     Active Substance: PENTAMIDINE
     Indication: Prophylaxis
     Dosage: UNK
     Route: 055
  8. VALGANCICLOVIR [Concomitant]
     Active Substance: VALGANCICLOVIR
     Indication: Prophylaxis
     Dosage: UNK
     Route: 065

REACTIONS (6)
  - Cerebral toxoplasmosis [Recovering/Resolving]
  - Brain oedema [Recovering/Resolving]
  - Toxoplasmosis [Recovering/Resolving]
  - Central nervous system lesion [Recovering/Resolving]
  - Pyrexia [Recovering/Resolving]
  - Product use in unapproved indication [Unknown]
